FAERS Safety Report 20556178 (Version 3)
Quarter: 2022Q3

REPORT INFORMATION
  Report Type: Report from Study
  Country: US (occurrence: None)
  Receive Date: 20220304
  Receipt Date: 20220928
  Transmission Date: 20221027
  Serious: Yes (Death, Hospitalization, Other)
  Sender: FDA-Public Use
  Company Number: US-ROCHE-3038555

PATIENT
  Age: 68 Year
  Sex: Male
  Weight: 90.5 kg

DRUGS (14)
  1. BALOXAVIR MARBOXIL [Suspect]
     Active Substance: BALOXAVIR MARBOXIL
     Indication: Influenza
     Route: 048
  2. BACLOFEN [Concomitant]
     Active Substance: BACLOFEN
     Route: 048
  3. BREXPIPRAZOLE [Concomitant]
     Active Substance: BREXPIPRAZOLE
     Route: 048
  4. CHOLECALCIFEROL [Concomitant]
     Active Substance: CHOLECALCIFEROL
     Dosage: 400 UNIT
     Route: 048
  5. CLINDAMYCIN [Concomitant]
     Active Substance: CLINDAMYCIN
     Route: 042
  6. DULOXETINE [Concomitant]
     Active Substance: DULOXETINE
     Route: 048
  7. FOLIC ACID [Concomitant]
     Active Substance: FOLIC ACID
     Route: 048
  8. GABAPENTIN [Concomitant]
     Active Substance: GABAPENTIN
     Route: 048
  9. ALBUTEROL\IPRATROPIUM [Concomitant]
     Active Substance: ALBUTEROL\IPRATROPIUM
  10. LIDOCAINE [Concomitant]
     Active Substance: LIDOCAINE
     Route: 062
  11. MELATONIN [Concomitant]
     Active Substance: MELATONIN
     Route: 048
  12. MEROPENEM [Concomitant]
     Active Substance: MEROPENEM
     Route: 042
  13. METHADONE [Concomitant]
     Active Substance: METHADONE HYDROCHLORIDE
     Route: 048
  14. PANTOPRAZOLE [Concomitant]
     Active Substance: PANTOPRAZOLE

REACTIONS (6)
  - Hypoxia [Fatal]
  - Cerebrovascular accident [Fatal]
  - Acute respiratory failure [Unknown]
  - Pneumonia influenzal [Unknown]
  - Back pain [Unknown]
  - Cerebral infarction [Unknown]

NARRATIVE: CASE EVENT DATE: 20220211
